FAERS Safety Report 14612173 (Version 1)
Quarter: 2018Q1

REPORT INFORMATION
  Report Type: Spontaneous
  Country: US (occurrence: US)
  Receive Date: 20180307
  Receipt Date: 20180307
  Transmission Date: 20180509
  Serious: Yes (Hospitalization)
  Sender: FDA-Public Use
  Company Number: None

PATIENT
  Age: 90 Year
  Sex: Male
  Weight: 83.25 kg

DRUGS (13)
  1. NINLARO [Suspect]
     Active Substance: IXAZOMIB CITRATE
     Indication: PLASMA CELL MYELOMA
     Dosage: ?          OTHER FREQUENCY:DAYS 1, 8 AND 15;?
     Route: 048
  2. ASPIRIN. [Concomitant]
     Active Substance: ASPIRIN
  3. DOCUSATE [Concomitant]
     Active Substance: DOCUSATE
  4. MORPHINE [Concomitant]
     Active Substance: MORPHINE
  5. MULTIVITAMIN [Concomitant]
     Active Substance: VITAMINS
  6. OMEPRAZOLE. [Concomitant]
     Active Substance: OMEPRAZOLE
  7. PANTOPRAZOLE [Concomitant]
     Active Substance: PANTOPRAZOLE
  8. GABAPENTIN. [Concomitant]
     Active Substance: GABAPENTIN
  9. TRAZODONE [Concomitant]
     Active Substance: TRAZODONE HYDROCHLORIDE
  10. LEXAPRO [Concomitant]
     Active Substance: ESCITALOPRAM OXALATE
  11. DEXAMETHASONE. [Concomitant]
     Active Substance: DEXAMETHASONE
  12. DONEPEZIL. [Concomitant]
     Active Substance: DONEPEZIL
  13. LYRICA [Concomitant]
     Active Substance: PREGABALIN

REACTIONS (2)
  - Pneumonia [None]
  - Influenza [None]

NARRATIVE: CASE EVENT DATE: 20180307
